FAERS Safety Report 13680464 (Version 1)
Quarter: 2017Q2

REPORT INFORMATION
  Report Type: Report from Study
  Country: None (occurrence: AR)
  Receive Date: 20170623
  Receipt Date: 20170623
  Transmission Date: 20170830
  Serious: Yes (Hospitalization, Other)
  Sender: FDA-Public Use
  Company Number: AR-ABBVIE-17P-007-2016674-00

PATIENT
  Age: 84 Year
  Sex: Female

DRUGS (1)
  1. ZEMPLAR [Suspect]
     Active Substance: PARICALCITOL
     Indication: SECONDARY HYPERTHYROIDISM
     Route: 048
     Dates: start: 20160407

REACTIONS (3)
  - Fluid retention [Not Recovered/Not Resolved]
  - Urinary tract infection [Recovering/Resolving]
  - Acute kidney injury [Unknown]

NARRATIVE: CASE EVENT DATE: 201706
